FAERS Safety Report 7705681-2 (Version None)
Quarter: 2011Q3

REPORT INFORMATION
  Report Type: 
  Country: None (occurrence: None)
  Receive Date: 20110824
  Receipt Date: 20110812
  Transmission Date: 20111222
  Serious: Yes (Hospitalization)
  Sender: FDA-Public Use
  Company Number: US-BAYER-201036780NA

PATIENT
  Sex: Female
  Weight: 86.168 kg

DRUGS (3)
  1. MIRENA [Concomitant]
  2. YAZ [Suspect]
     Dosage: UNK UNK, UNK
     Route: 048
     Dates: start: 20060901, end: 20091001
  3. FIORICET [Concomitant]

REACTIONS (1)
  - GALLBLADDER DISORDER [None]
